FAERS Safety Report 9250822 (Version 1)
Quarter: 2013Q2

REPORT INFORMATION
  Report Type: Report from Study
  Country: CA (occurrence: CA)
  Receive Date: 20130424
  Receipt Date: 20130424
  Transmission Date: 20140414
  Serious: Yes (Other)
  Sender: FDA-Public Use
  Company Number: PHHY2013CA039006

PATIENT
  Sex: Female

DRUGS (1)
  1. FTY 720 [Suspect]
     Dosage: 0.5 MG, QD
     Route: 048

REACTIONS (2)
  - Blood pressure decreased [Unknown]
  - Chest pain [Not Recovered/Not Resolved]
